FAERS Safety Report 16644618 (Version 3)
Quarter: 2019Q3

REPORT INFORMATION
  Report Type: Spontaneous
  Country: US (occurrence: US)
  Receive Date: 20190729
  Receipt Date: 20190903
  Transmission Date: 20191004
  Serious: Yes (Hospitalization, Other)
  Sender: FDA-Public Use
  Company Number: US-SA-2019SA196102

PATIENT
  Age: 65 Year
  Sex: Female
  Weight: 82.55 kg

DRUGS (3)
  1. PREGABALIN. [Suspect]
     Active Substance: PREGABALIN
     Dosage: RESTARTED UNK
     Route: 048
  2. AMBIEN [Suspect]
     Active Substance: ZOLPIDEM TARTRATE
     Dosage: UNK
     Route: 065
  3. PREGABALIN. [Suspect]
     Active Substance: PREGABALIN
     Indication: FIBROMYALGIA
     Dosage: 150 MG, BID
     Route: 048

REACTIONS (10)
  - Pruritus [Unknown]
  - Sleep disorder [Unknown]
  - Loss of consciousness [Unknown]
  - Arthralgia [Unknown]
  - Brain injury [Unknown]
  - Seizure [Unknown]
  - Product dose omission [Unknown]
  - Fibromyalgia [Recovered/Resolved]
  - Crying [Unknown]
  - Myalgia [Unknown]
